FAERS Safety Report 4706987-1 (Version None)
Quarter: 2005Q3

REPORT INFORMATION
  Report Type: 
  Country: None (occurrence: None)
  Receive Date: 20050706
  Receipt Date: 20050621
  Transmission Date: 20060218
  Serious: Yes (Other)
  Sender: FDA-Public Use
  Company Number: PHBS2005JP08978

PATIENT
  Sex: Female

DRUGS (6)
  1. NEORAL [Suspect]
     Indication: SYSTEMIC LUPUS ERYTHEMATOSUS
     Route: 048
     Dates: start: 20040101, end: 20050101
  2. NEORAL [Suspect]
     Dosage: 150 MG/D
     Route: 048
     Dates: start: 20050101, end: 20050101
  3. NEORAL [Suspect]
     Dosage: 50 MG/D
     Route: 048
     Dates: start: 20050101
  4. MEDROL [Suspect]
     Dosage: 6 MG/D
     Route: 065
  5. PERSANTIN [Suspect]
     Route: 065
  6. GASTER [Suspect]
     Route: 065

REACTIONS (2)
  - ABORTION SPONTANEOUS [None]
  - DRUG EXPOSURE DURING PREGNANCY [None]
